FAERS Safety Report 10912909 (Version 1)
Quarter: 2015Q1

REPORT INFORMATION
  Report Type: Report from Study
  Country: US (occurrence: US)
  Receive Date: 20150313
  Receipt Date: 20150313
  Transmission Date: 20150721
  Serious: Yes (Life-Threatening)
  Sender: FDA-Public Use
  Company Number: US-ABBVIE-15P-163-1356540-00

PATIENT
  Age: 58 Year
  Sex: Male

DRUGS (18)
  1. LIDOCAINE. [Concomitant]
     Active Substance: LIDOCAINE
     Indication: GASTROINTESTINAL TUBE INSERTION
  2. MIDAZOLAM [Concomitant]
     Active Substance: MIDAZOLAM\MIDAZOLAM HYDROCHLORIDE
     Indication: GASTROINTESTINAL TUBE INSERTION
     Route: 042
     Dates: start: 20131210, end: 20131210
  3. LIDOCAINE. [Concomitant]
     Active Substance: LIDOCAINE
     Indication: LOCAL ANAESTHESIA
     Dosage: INTRADERMAL
     Dates: start: 20140208, end: 20140208
  4. SINEMET [Suspect]
     Active Substance: CARBIDOPA\LEVODOPA
     Indication: PARKINSON^S DISEASE
     Dosage: 100/25 MG
     Route: 048
     Dates: start: 20131125, end: 20131210
  5. VITAMIN B12 [Concomitant]
     Active Substance: CYANOCOBALAMIN
     Indication: VITAMIN SUPPLEMENTATION
     Route: 048
     Dates: start: 20131125
  6. VITAMIN B6 [Concomitant]
     Active Substance: PYRIDOXINE HYDROCHLORIDE
     Indication: VITAMIN SUPPLEMENTATION
     Route: 048
     Dates: start: 20131125
  7. HYALURONIC ACID [Concomitant]
     Active Substance: HYALURONIC ACID
     Indication: SUPPLEMENTATION THERAPY
     Route: 048
     Dates: start: 2011
  8. TYLENOL [Concomitant]
     Active Substance: ACETAMINOPHEN
     Indication: PROCEDURAL PAIN
     Dosage: AS NEEDED
     Route: 048
     Dates: start: 20131213, end: 20131217
  9. PROPOFOL. [Concomitant]
     Active Substance: PROPOFOL
     Indication: SEDATION
     Route: 042
     Dates: start: 20131210, end: 20131210
  10. LIDOCAINE. [Concomitant]
     Active Substance: LIDOCAINE
     Indication: SEDATION
     Route: 042
     Dates: start: 20150303, end: 20150303
  11. LIDOCAINE. [Concomitant]
     Active Substance: LIDOCAINE
     Indication: LACERATION
  12. TYLENOL [Concomitant]
     Active Substance: ACETAMINOPHEN
     Indication: ARTHRALGIA
     Route: 042
     Dates: start: 20140425, end: 20140425
  13. COLACE [Concomitant]
     Active Substance: DOCUSATE SODIUM
     Indication: CONSTIPATION PROPHYLAXIS
     Route: 048
     Dates: start: 20131210
  14. MIDAZOLAM [Concomitant]
     Active Substance: MIDAZOLAM\MIDAZOLAM HYDROCHLORIDE
     Indication: SEDATION
     Route: 042
     Dates: start: 20150303, end: 20150303
  15. PROPOFOL. [Concomitant]
     Active Substance: PROPOFOL
     Indication: KNEE ARTHROPLASTY
     Route: 042
     Dates: start: 20140425, end: 20140425
  16. PROPOFOL. [Concomitant]
     Active Substance: PROPOFOL
     Indication: GASTROINTESTINAL TUBE INSERTION
     Route: 042
     Dates: start: 20150303, end: 20150303
  17. DUODOPA [Suspect]
     Active Substance: CARBIDOPA\LEVODOPA
     Indication: PARKINSON^S DISEASE
     Dosage: 15.0 AM DOSE, 6.1 CONT DOSE, 1.0 EXTRA DOSE
     Route: 050
     Dates: start: 20131210
  18. TYLENOL [Concomitant]
     Active Substance: ACETAMINOPHEN
     Indication: PAIN
     Dosage: 3 TIMES A DAY
     Route: 048
     Dates: start: 2011

REACTIONS (1)
  - Respiratory distress [Recovered/Resolved]

NARRATIVE: CASE EVENT DATE: 20150303
